FAERS Safety Report 13149999 (Version 1)
Quarter: 2017Q1

REPORT INFORMATION
  Report Type: Spontaneous
  Country: GB (occurrence: GB)
  Receive Date: 20170125
  Receipt Date: 20170125
  Transmission Date: 20170428
  Serious: Yes (Other)
  Sender: FDA-Public Use
  Company Number: GB-PFIZER INC-2017025873

PATIENT
  Age: 24 Year
  Sex: Female
  Weight: 85 kg

DRUGS (6)
  1. PREGABALIN. [Suspect]
     Active Substance: PREGABALIN
     Indication: POOR QUALITY SLEEP
     Dosage: 75MG AM, 150MG PM.
     Route: 048
     Dates: start: 20150302
  2. BACLOFEN. [Suspect]
     Active Substance: BACLOFEN
     Indication: POOR QUALITY SLEEP
     Dosage: 20 MG, UNK
     Route: 048
     Dates: start: 20150901
  3. AMITRIPTYLINE [Concomitant]
     Active Substance: AMITRIPTYLINE
     Dosage: UNK
  4. ANADIN PARACETAMOL [Concomitant]
     Active Substance: ACETAMINOPHEN
     Dosage: UNK
  5. DEXAMFETAMINE SULFATE [Concomitant]
     Active Substance: DEXTROAMPHETAMINE SULFATE
  6. IBUPROFEN. [Concomitant]
     Active Substance: IBUPROFEN
     Dosage: UNK

REACTIONS (6)
  - Mental disorder [Unknown]
  - Hypoaesthesia [Not Recovered/Not Resolved]
  - Dissociation [Unknown]
  - Condition aggravated [Unknown]
  - Product use issue [Unknown]
  - Sensory loss [Unknown]

NARRATIVE: CASE EVENT DATE: 20150302
